FAERS Safety Report 6735921-8 (Version None)
Quarter: 2010Q2

REPORT INFORMATION
  Report Type: 
  Country: None (occurrence: None)
  Receive Date: 20100521
  Receipt Date: 20100514
  Transmission Date: 20101027
  Serious: Yes (Hospitalization)
  Sender: FDA-Public Use
  Company Number: B0625916A

PATIENT
  Sex: Male

DRUGS (4)
  1. VALTREX [Suspect]
     Indication: HERPES ZOSTER
     Dosage: 500MG PER DAY
     Route: 048
     Dates: start: 20100105, end: 20100109
  2. CANDESARTAN CILEXETIL [Concomitant]
     Indication: HYPERTENSION
     Dosage: 8MG PER DAY
     Route: 048
  3. CALCIUM CARBONATE [Concomitant]
     Indication: BLOOD PHOSPHORUS INCREASED
     Dosage: 1.5MG PER DAY
     Route: 048
  4. LEXIN [Concomitant]
     Indication: TRIGEMINAL NEURALGIA
     Dosage: 200MG PER DAY
     Route: 048

REACTIONS (4)
  - DISORIENTATION [None]
  - OVERDOSE [None]
  - RESTLESSNESS [None]
  - TREMOR [None]
